FAERS Safety Report 7720525-0 (Version None)
Quarter: 2011Q3

REPORT INFORMATION
  Report Type: 
  Country: None (occurrence: None)
  Receive Date: 20110831
  Receipt Date: 20110831
  Transmission Date: 20111222
  Serious: Yes (Hospitalization)
  Sender: FDA-Public Use
  Company Number: None

PATIENT
  Age: 63 Year
  Sex: Female
  Weight: 110.22 kg

DRUGS (3)
  1. INSULIN [Concomitant]
  2. SIMAVASTATIN [Suspect]
     Indication: HYPERLIPIDAEMIA
     Dosage: 80MG
     Route: 048
     Dates: start: 20090111, end: 20110824
  3. GEMFIBROZIL [Concomitant]

REACTIONS (3)
  - BLOOD GLUCOSE DECREASED [None]
  - DIABETES MELLITUS INADEQUATE CONTROL [None]
  - RHABDOMYOLYSIS [None]
